FAERS Safety Report 23015711 (Version 4)
Quarter: 2023Q4

REPORT INFORMATION
  Report Type: Spontaneous
  Country: FR (occurrence: FR)
  Receive Date: 20231002
  Receipt Date: 20231201
  Transmission Date: 20240110
  Serious: Yes (Other)
  Sender: FDA-Public Use
  Company Number: FR-ROCHE-3417961

PATIENT
  Age: 54 Year
  Sex: Male

DRUGS (16)
  1. GEMCITABINE [Suspect]
     Active Substance: GEMCITABINE
     Indication: Cholangiocarcinoma
     Dosage: UNK
     Route: 065
  2. BEVACIZUMAB [Suspect]
     Active Substance: BEVACIZUMAB
     Indication: Cholangiocarcinoma
     Dosage: 15 MILLIGRAM/KILOGRAM, Q3W (15 MILLIGRAM/KILOGRAM EVERY 3 WEEKS)
     Route: 042
     Dates: start: 202009, end: 202301
  3. BEVACIZUMAB [Suspect]
     Active Substance: BEVACIZUMAB
     Indication: Mixed hepatocellular cholangiocarcinoma
  4. TRASTUZUMAB [Suspect]
     Active Substance: TRASTUZUMAB
     Indication: Cholangiocarcinoma
     Dosage: UNK
     Route: 065
  5. TRASTUZUMAB [Suspect]
     Active Substance: TRASTUZUMAB
     Indication: Mixed hepatocellular cholangiocarcinoma
  6. CISPLATIN [Suspect]
     Active Substance: CISPLATIN
     Indication: Cholangiocarcinoma
     Dosage: UNK
     Route: 065
  7. ATEZOLIZUMAB [Suspect]
     Active Substance: ATEZOLIZUMAB
     Indication: Cholangiocarcinoma
     Dosage: 1200 MILLIGRAM, Q3W (1200 MILLIGRAM EVERY 3 WEEKS)
     Route: 042
     Dates: start: 202009, end: 202301
  8. ATEZOLIZUMAB [Suspect]
     Active Substance: ATEZOLIZUMAB
     Indication: Mixed hepatocellular cholangiocarcinoma
  9. SORAFENIB [Concomitant]
     Active Substance: SORAFENIB
     Indication: Cholangiocarcinoma
     Dosage: UNK
     Route: 065
  10. SORAFENIB [Concomitant]
     Active Substance: SORAFENIB
     Indication: Mixed hepatocellular cholangiocarcinoma
  11. LENVATINIB [Concomitant]
     Active Substance: LENVATINIB
     Indication: Cholangiocarcinoma
     Dosage: UNK
     Route: 065
  12. LENVATINIB [Concomitant]
     Active Substance: LENVATINIB
     Indication: Mixed hepatocellular cholangiocarcinoma
  13. OLAPARIB [Concomitant]
     Active Substance: OLAPARIB
     Indication: Cholangiocarcinoma
     Dosage: UNK
     Route: 065
  14. OLAPARIB [Concomitant]
     Active Substance: OLAPARIB
     Indication: Mixed hepatocellular cholangiocarcinoma
  15. CISPLATIN;GEMCITABINE [Concomitant]
     Indication: Mixed hepatocellular cholangiocarcinoma
     Dosage: UNK
     Route: 065
  16. CISPLATIN;GEMCITABINE [Concomitant]
     Indication: Cholangiocarcinoma

REACTIONS (6)
  - Mixed hepatocellular cholangiocarcinoma [Recovered/Resolved]
  - Anaemia [Unknown]
  - Thrombocytopenia [Unknown]
  - Drug ineffective for unapproved indication [Unknown]
  - Therapy non-responder [Unknown]
  - Off label use [Unknown]
